FAERS Safety Report 5624606-7 (Version None)
Quarter: 2008Q1

REPORT INFORMATION
  Report Type: 
  Country: None (occurrence: None)
  Receive Date: 20080213
  Receipt Date: 20080117
  Transmission Date: 20080703
  Serious: No
  Sender: FDA-Public Use
  Company Number: US-JNJFOC-20080104873

PATIENT
  Age: 38 Year
  Sex: Female
  Weight: 122.47 kg

DRUGS (4)
  1. INVEGA [Suspect]
     Indication: BIPOLAR DISORDER
  2. ZESTORIL [Concomitant]
     Indication: HYPERTENSION
     Route: 048
  3. ROCALTROL [Concomitant]
     Indication: PARATHYROID DISORDER
     Route: 048
  4. ABILIFY [Concomitant]
     Indication: BIPOLAR DISORDER
     Route: 048

REACTIONS (3)
  - DYSPHAGIA [None]
  - SPEECH DISORDER [None]
  - TONGUE DISORDER [None]
